FAERS Safety Report 7778513-4 (Version None)
Quarter: 2011Q3

REPORT INFORMATION
  Report Type: 
  Country: None (occurrence: None)
  Receive Date: 20110926
  Receipt Date: 20110919
  Transmission Date: 20111222
  Serious: Yes (Hospitalization)
  Sender: FDA-Public Use
  Company Number: FR-BAYER-2011-088579

PATIENT
  Age: 86 Year
  Sex: Female

DRUGS (7)
  1. ACETAMINOPHEN [Concomitant]
  2. LEVOTHYROXINE SODIUM [Concomitant]
  3. HYPERIUM [Concomitant]
  4. TRAMADOL HCL [Concomitant]
  5. ARIXTRA [Concomitant]
  6. PERINDOPRIL ERBUMINE [Concomitant]
  7. CIPROFLOXACIN [Suspect]
     Indication: URINARY TRACT INFECTION
     Dosage: 500 MG, UNK
     Route: 048
     Dates: start: 20110321, end: 20110331

REACTIONS (5)
  - CLOSTRIDIUM DIFFICILE COLITIS [None]
  - DIARRHOEA HAEMORRHAGIC [None]
  - RECTAL HAEMORRHAGE [None]
  - HYPOKALAEMIA [None]
  - RENAL FAILURE ACUTE [None]
